FAERS Safety Report 5220405-9 (Version None)
Quarter: 2007Q1

REPORT INFORMATION
  Report Type: 
  Country: None (occurrence: None)
  Receive Date: 20070125
  Receipt Date: 20070117
  Transmission Date: 20070707
  Serious: Yes (Hospitalization)
  Sender: FDA-Public Use
  Company Number: JP-ABBOTT-07P-087-0356336-00

PATIENT
  Sex: Female

DRUGS (6)
  1. KLARICID DRY SYRUP [Suspect]
     Indication: UPPER RESPIRATORY TRACT INFLAMMATION
     Route: 048
     Dates: start: 20061221, end: 20061224
  2. AMOXICILLIN HYDRATE [Suspect]
     Indication: UPPER RESPIRATORY TRACT INFLAMMATION
     Route: 048
     Dates: start: 20061218, end: 20061221
  3. PARACETAMOL [Suspect]
     Indication: UPPER RESPIRATORY TRACT INFLAMMATION
     Dosage: 300-600 MILLIGRAM DAILY
     Route: 048
     Dates: start: 20061218, end: 20061224
  4. TIPEPIDINE HIBENZATE [Concomitant]
     Indication: UPPER RESPIRATORY TRACT INFLAMMATION
     Route: 048
     Dates: start: 20061218, end: 20061224
  5. L-CARBOCISTEINE [Concomitant]
     Indication: UPPER RESPIRATORY TRACT INFLAMMATION
     Route: 048
     Dates: start: 20061218, end: 20061224
  6. CYPROHEPTADINE HYDROCHLORIDE [Concomitant]
     Indication: UPPER RESPIRATORY TRACT INFLAMMATION
     Route: 048
     Dates: start: 20061218, end: 20061224

REACTIONS (3)
  - LIVER DISORDER [None]
  - PNEUMONIA [None]
  - RASH [None]
